FAERS Safety Report 16786203 (Version 4)
Quarter: 2021Q2

REPORT INFORMATION
  Report Type: Spontaneous
  Country: US (occurrence: US)
  Receive Date: 20190909
  Receipt Date: 20210608
  Transmission Date: 20210716
  Serious: Yes (Other)
  Sender: FDA-Public Use
  Company Number: US-GILEAD-2019-0426609

PATIENT
  Age: 49 Year
  Sex: Male
  Weight: 58.96 kg

DRUGS (43)
  1. ATRIPLA [Suspect]
     Active Substance: EFAVIRENZ\EMTRICITABINE\TENOFOVIR DISOPROXIL FUMARATE
     Dosage: UNK
     Route: 048
     Dates: start: 2014, end: 2015
  2. TIZANIDINE. [Concomitant]
     Active Substance: TIZANIDINE
  3. ATRIPLA [Suspect]
     Active Substance: EFAVIRENZ\EMTRICITABINE\TENOFOVIR DISOPROXIL FUMARATE
     Indication: HIV INFECTION
     Dosage: UNK
     Route: 048
     Dates: start: 20100105, end: 20140422
  4. ODEFSEY [Concomitant]
     Active Substance: EMTRICITABINE\RILPIVIRINE HYDROCHLORIDE\TENOFOVIR ALAFENAMIDE FUMARATE
  5. BENZODIAZEPINE DERIVATIVES [Concomitant]
     Active Substance: BENZODIAZEPINE
  6. BENAZEPRIL [Concomitant]
     Active Substance: BENAZEPRIL HYDROCHLORIDE
  7. GABAPENTIN. [Concomitant]
     Active Substance: GABAPENTIN
  8. FERROUS SULFATE. [Concomitant]
     Active Substance: FERROUS SULFATE
  9. PRAZOSIN. [Concomitant]
     Active Substance: PRAZOSIN
  10. MIRTAZAPINE. [Concomitant]
     Active Substance: MIRTAZAPINE
  11. PAROXETINE. [Concomitant]
     Active Substance: PAROXETINE
  12. CYCLOBENZAPRIN [Concomitant]
     Active Substance: CYCLOBENZAPRINE
  13. TRUVADA [Suspect]
     Active Substance: EMTRICITABINE\TENOFOVIR DISOPROXIL FUMARATE
     Dosage: UNK
     Route: 048
     Dates: start: 2010, end: 2014
  14. BUPROPION. [Concomitant]
     Active Substance: BUPROPION
  15. TRUVADA [Suspect]
     Active Substance: EMTRICITABINE\TENOFOVIR DISOPROXIL FUMARATE
     Indication: HIV INFECTION
     Dosage: UNK
     Route: 048
     Dates: start: 20140227, end: 20140603
  16. LOPERAMIDE [Concomitant]
     Active Substance: LOPERAMIDE
  17. TEMAZEPAM. [Concomitant]
     Active Substance: TEMAZEPAM
  18. ALLOPURINOL. [Concomitant]
     Active Substance: ALLOPURINOL
  19. GUAIFENESIN. [Concomitant]
     Active Substance: GUAIFENESIN
  20. ACETAMINOPHEN. [Concomitant]
     Active Substance: ACETAMINOPHEN
  21. ACYCLOVIR [ACICLOVIR] [Concomitant]
     Active Substance: ACYCLOVIR
  22. HYDROXYZINE [Concomitant]
     Active Substance: HYDROXYZINE HYDROCHLORIDE
  23. LORTADINE [Concomitant]
     Active Substance: LORATADINE
  24. MELOXICAM. [Concomitant]
     Active Substance: MELOXICAM
  25. BISACODYL. [Concomitant]
     Active Substance: BISACODYL
  26. SULFAMETHOXAZOLE [Concomitant]
     Active Substance: SULFAMETHOXAZOLE
  27. JULUCA [Concomitant]
     Active Substance: DOLUTEGRAVIR SODIUM\RILPIVIRINE HYDROCHLORIDE
     Dosage: UNK
  28. ASPIRINE [Concomitant]
     Active Substance: ASPIRIN
  29. LAMIVUDINE. [Concomitant]
     Active Substance: LAMIVUDINE
  30. ESCITALOPRAM OXALATE. [Concomitant]
     Active Substance: ESCITALOPRAM OXALATE
  31. BACTRIM [Concomitant]
     Active Substance: SULFAMETHOXAZOLE\TRIMETHOPRIM
  32. PANTOPRAZOLE [Concomitant]
     Active Substance: PANTOPRAZOLE
  33. VARENICLINE [Concomitant]
     Active Substance: VARENICLINE
  34. ONDANSETRON [Concomitant]
     Active Substance: ONDANSETRON
  35. NICOTINE. [Concomitant]
     Active Substance: NICOTINE
  36. POTASSIUM CHLORIDE. [Concomitant]
     Active Substance: POTASSIUM CHLORIDE
  37. SODIUM BICARBONATE. [Concomitant]
     Active Substance: SODIUM BICARBONATE
  38. CLOTRIMAZOLE. [Concomitant]
     Active Substance: CLOTRIMAZOLE
  39. NSAIDS [Concomitant]
     Active Substance: UNSPECIFIED INGREDIENT
  40. METRONIDAZOLE. [Concomitant]
     Active Substance: METRONIDAZOLE
  41. CYPROHEPATADINE [Concomitant]
     Active Substance: CYPROHEPTADINE HYDROCHLORIDE
  42. CALCITRIOL. [Concomitant]
     Active Substance: CALCITRIOL
  43. FLUCONAZOLE. [Concomitant]
     Active Substance: FLUCONAZOLE

REACTIONS (12)
  - Acute kidney injury [Unknown]
  - Influenza [Unknown]
  - Chronic kidney disease [Not Recovered/Not Resolved]
  - Renal tubular necrosis [Unknown]
  - Anhedonia [Unknown]
  - Renal failure [Not Recovered/Not Resolved]
  - Economic problem [Unknown]
  - Pain [Unknown]
  - End stage renal disease [Not Recovered/Not Resolved]
  - Emotional distress [Unknown]
  - Anxiety [Unknown]
  - Fanconi syndrome acquired [Not Recovered/Not Resolved]

NARRATIVE: CASE EVENT DATE: 20140211
